FAERS Safety Report 9282479 (Version 1)
Quarter: 2013Q2

REPORT INFORMATION
  Report Type: Spontaneous
  Country: US (occurrence: US)
  Receive Date: 20130510
  Receipt Date: 20130510
  Transmission Date: 20140414
  Serious: Yes (Other)
  Sender: FDA-Public Use
  Company Number: US-PFIZER INC-2013144036

PATIENT
  Age: 42 Year
  Sex: Male
  Weight: 88.4 kg

DRUGS (4)
  1. ADVIL [Suspect]
     Dosage: UNK
  2. CENTRUM A-Z [Suspect]
     Indication: VITAMIN SUPPLEMENTATION
     Dosage: UNK
     Dates: start: 20130507
  3. ZANTAC [Suspect]
     Dosage: UNK
  4. GINKGO [Suspect]
     Dosage: UNK

REACTIONS (3)
  - Suicidal ideation [Unknown]
  - Depressed mood [Unknown]
  - Muscle spasms [Unknown]
